FAERS Safety Report 22139427 (Version 1)
Quarter: 2023Q1

REPORT INFORMATION
  Report Type: Report from Study
  Country: US (occurrence: US)
  Receive Date: 20230327
  Receipt Date: 20230327
  Transmission Date: 20230418
  Serious: Yes (Death)
  Sender: FDA-Public Use
  Company Number: US-ABBVIE-4705129

PATIENT
  Sex: Male

DRUGS (1)
  1. VENCLEXTA [Suspect]
     Active Substance: VENETOCLAX
     Indication: Acute myelomonocytic leukaemia
     Dosage: TAKE 4 TABLET(S) BY MOUTH EVERY DAY. FORM STRENGTH: 100 MG?TREATMENT WAS NOT ONGOING
     Route: 048

REACTIONS (2)
  - Death [Fatal]
  - Off label use [Unknown]
